FAERS Safety Report 6869579-4 (Version None)
Quarter: 2010Q3

REPORT INFORMATION
  Report Type: 
  Country: None (occurrence: None)
  Receive Date: 20100722
  Receipt Date: 20080922
  Transmission Date: 20110219
  Serious: No
  Sender: FDA-Public Use
  Company Number: US-PFIZER INC-2008067664

PATIENT
  Sex: Female
  Weight: 58.06 kg

DRUGS (9)
  1. CHANTIX [Suspect]
     Indication: SMOKING CESSATION THERAPY
     Dates: start: 20080803, end: 20080810
  2. ATENOLOL [Concomitant]
     Indication: HYPERTENSION
  3. CALCIUM [Concomitant]
  4. ACTONEL [Concomitant]
     Indication: OSTEOPOROSIS
  5. SPIRIVA [Concomitant]
  6. ALBUTEROL [Concomitant]
  7. ALL OTHER THERAPEUTIC PRODUCTS [Concomitant]
  8. COMBIVENT [Concomitant]
     Route: 055
  9. HYDROXYCHLOROQUINE [Concomitant]
     Indication: SYSTEMIC LUPUS ERYTHEMATOSUS
     Route: 055

REACTIONS (7)
  - DECREASED APPETITE [None]
  - DIARRHOEA [None]
  - FLUSHING [None]
  - HYPERHIDROSIS [None]
  - INFLUENZA LIKE ILLNESS [None]
  - INSOMNIA [None]
  - NAUSEA [None]
